FAERS Safety Report 8357193-3 (Version None)
Quarter: 2012Q2

REPORT INFORMATION
  Report Type: 
  Country: None (occurrence: None)
  Receive Date: 20120510
  Receipt Date: 20120504
  Transmission Date: 20120825
  Serious: Yes (Death)
  Sender: FDA-Public Use
  Company Number: 2012SP024059

PATIENT
  Age: 76 Year
  Sex: Female

DRUGS (4)
  1. SAPHRIS [Suspect]
     Indication: BIPOLAR DISORDER
     Dosage: 10 MG;BID;
     Dates: start: 20120130
  2. PLAVIX [Concomitant]
  3. LITHIUM CARBONATE [Concomitant]
  4. ZANTAC [Concomitant]

REACTIONS (3)
  - HEAD INJURY [None]
  - FALL [None]
  - BLOOD ALBUMIN DECREASED [None]
